FAERS Safety Report 7357006-2 (Version None)
Quarter: 2011Q1

REPORT INFORMATION
  Report Type: 
  Country: None (occurrence: None)
  Receive Date: 20110317
  Receipt Date: 20110309
  Transmission Date: 20110831
  Serious: Yes (Hospitalization)
  Sender: FDA-Public Use
  Company Number: US-TEVA-270567USA

PATIENT
  Sex: Female

DRUGS (5)
  1. INEGY [Concomitant]
  2. BECLOMETHASONE DIPROPIONATE [Suspect]
     Indication: ASTHMA
     Route: 055
  3. SERETIDE [Suspect]
     Indication: ASTHMA
     Dosage: 1 PUFF TWICE PER DAY INHALED
  4. PANTOPRAZOLE [Concomitant]
  5. ACETYLSALICYLIC ACID [Concomitant]

REACTIONS (2)
  - PNEUMONIA [None]
  - SPUTUM RETENTION [None]
